FAERS Safety Report 7112330-3 (Version None)
Quarter: 2010Q4

REPORT INFORMATION
  Report Type: 
  Country: None (occurrence: None)
  Receive Date: 20101119
  Receipt Date: 20100729
  Transmission Date: 20110411
  Serious: No
  Sender: FDA-Public Use
  Company Number: A0872957A

PATIENT
  Age: 81 Year
  Sex: Male

DRUGS (11)
  1. AVODART [Suspect]
     Dosage: 1CAP PER DAY
     Route: 048
     Dates: start: 20100728
  2. PLAVIX [Concomitant]
  3. LASIX [Concomitant]
  4. GLIMEPIRIDE [Concomitant]
  5. ZOLOFT [Concomitant]
  6. ASPIRIN [Concomitant]
  7. SIMVASTATIN [Concomitant]
  8. DIAZEPAM [Concomitant]
  9. BENAZEPRIL [Concomitant]
  10. AMLODIPINE [Concomitant]
  11. LEVAQUIN [Concomitant]

REACTIONS (1)
  - DYSGEUSIA [None]
